FAERS Safety Report 13614957 (Version 1)
Quarter: 2017Q2

REPORT INFORMATION
  Report Type: Spontaneous
  Country: JP (occurrence: JP)
  Receive Date: 20170606
  Receipt Date: 20170606
  Transmission Date: 20170830
  Serious: Yes (Other)
  Sender: FDA-Public Use
  Company Number: JP-SA-2017SA100695

PATIENT
  Sex: Male

DRUGS (2)
  1. CISPLATIN. [Concomitant]
     Active Substance: CISPLATIN
     Indication: LIP AND/OR ORAL CAVITY CANCER
  2. DOCETAXEL. [Suspect]
     Active Substance: DOCETAXEL
     Indication: LIP AND/OR ORAL CAVITY CANCER
     Route: 013

REACTIONS (1)
  - Facial paralysis [Recovered/Resolved]
